FAERS Safety Report 8626609 (Version 3)
Quarter: 2012Q4

REPORT INFORMATION
  Report Type: 
  Country: DE (occurrence: DE)
  Receive Date: 20120620
  Receipt Date: 20120906
  Transmission Date: 20130627
  Serious: Yes (Other)
  Sender: FDA-Public Use
  Company Number: DE-PFIZER INC-2012147138

PATIENT
  Sex: Female

DRUGS (2)
  1. DOSTINEX [Suspect]
     Indication: PROLACTINOMA
     Dosage: 0.5 mg, weekly
     Route: 064
     Dates: start: 20100426, end: 20100805
  2. BROMOCRIPTINE [Suspect]
     Indication: PROLACTINOMA
     Dosage: UNK
     Route: 064
     Dates: start: 20100407, end: 20100426

REACTIONS (3)
  - Maternal exposure timing unspecified [Recovered/Resolved with Sequelae]
  - Pemphigus [Recovered/Resolved with Sequelae]
  - Maternal drugs affecting foetus [None]
